FAERS Safety Report 8881519 (Version 4)
Quarter: 2013Q2

REPORT INFORMATION
  Report Type: Report from Study
  Country: ES (occurrence: ES)
  Receive Date: 20121102
  Receipt Date: 20130508
  Transmission Date: 20140414
  Serious: Yes (Death, Hospitalization)
  Sender: FDA-Public Use
  Company Number: ES-PFIZER INC-2012268223

PATIENT
  Age: 61 Year
  Sex: Female
  Weight: 57 kg

DRUGS (13)
  1. IRINOTECAN HCL [Suspect]
     Indication: COLORECTAL CANCER METASTATIC
     Dosage: 180 MG/M2, ON DAY 1 EVERY 14 DAYS
     Route: 042
     Dates: start: 20120507, end: 20120704
  2. FOLINIC ACID [Suspect]
     Indication: COLORECTAL CANCER METASTATIC
     Dosage: 400 MG/M2, ON DAY 1 EVERY 14 DAYS
     Route: 042
     Dates: start: 20120507, end: 20120704
  3. FLUOROURACIL [Suspect]
     Indication: COLORECTAL CANCER METASTATIC
     Dosage: 400 MG/M2, ON DAY 1 EVERY 14 DAYS
     Route: 042
     Dates: start: 20120507, end: 20120704
  4. FLUOROURACIL [Suspect]
     Dosage: 2400 MG/M2, ON DAYS 1 AND 2 EVERY 14 DAYS
     Route: 042
     Dates: start: 20120507, end: 20120704
  5. BLINDED THERAPY [Suspect]
     Indication: COLORECTAL CANCER METASTATIC
     Dosage: UNK
     Route: 042
     Dates: start: 20120507, end: 20120724
  6. ENALAPRIL [Concomitant]
     Indication: HYPERTENSION
     Dosage: UNK
  7. ATENOLOL [Concomitant]
     Indication: HYPERTENSION
     Dosage: UNK
  8. HIGROTONA [Concomitant]
     Indication: HYPERTENSION
     Dosage: UNK
  9. IRON [Concomitant]
     Indication: ANAEMIA
     Dosage: UNK
  10. OMEPRAZOLE [Concomitant]
     Indication: PROPHYLAXIS
     Dosage: UNK
  11. LORAZEPAM [Concomitant]
     Dosage: UNK
  12. PARACETAMOL [Concomitant]
     Indication: PAIN
     Dosage: UNK
  13. IBUPROFEN [Concomitant]
     Indication: PAIN
     Dosage: UNK

REACTIONS (2)
  - Thrombotic microangiopathy [Fatal]
  - Intestinal obstruction [Fatal]
